FAERS Safety Report 21629489 (Version 3)
Quarter: 2022Q4

REPORT INFORMATION
  Report Type: Spontaneous
  Country: KR (occurrence: KR)
  Receive Date: 20221122
  Receipt Date: 20221129
  Transmission Date: 20230113
  Serious: Yes (Death, Other)
  Sender: FDA-Public Use
  Company Number: KR-PFIZER INC-PV202200106412

PATIENT
  Age: 60 Year
  Sex: Female
  Weight: 47.1 kg

DRUGS (41)
  1. VANCOMYCIN [Suspect]
     Active Substance: VANCOMYCIN
     Indication: Urinary tract infection
     Dosage: 15 MG/KG, 2X/DAY
     Route: 042
     Dates: start: 20220902, end: 20220911
  2. KEYTRUDA [Concomitant]
     Active Substance: PEMBROLIZUMAB
     Indication: Endometrial cancer
     Dosage: 200 MG, (EVERY 3WEEKS)
     Route: 042
     Dates: start: 20220830, end: 20220830
  3. LENVIMA [Concomitant]
     Active Substance: LENVATINIB
     Indication: Endometrial cancer
     Dosage: 20 MG, ONCE A DAY
     Route: 048
     Dates: start: 20220830, end: 20220830
  4. ELIQUIS [Concomitant]
     Active Substance: APIXABAN
     Indication: Deep vein thrombosis
     Dosage: 1 DF, 2X/DAY
     Route: 048
     Dates: start: 20220407, end: 20220831
  5. MIRABEGRON [Concomitant]
     Active Substance: MIRABEGRON
     Indication: Hypertonic bladder
     Dosage: 1 DF, 1X/DAY
     Route: 048
     Dates: start: 20220429, end: 20220831
  6. VESICARE [Concomitant]
     Active Substance: SOLIFENACIN SUCCINATE
     Indication: Hypertonic bladder
     Dosage: 1 DF, 1X/DAY
     Route: 048
     Dates: start: 20220707, end: 20220831
  7. LANSOPRAZOLE [Concomitant]
     Active Substance: LANSOPRAZOLE
     Indication: Dyspepsia
     Dosage: 1 DF, 1X/DAY
     Route: 048
     Dates: start: 20220826, end: 20220911
  8. MAGOCAIN [Concomitant]
     Dosage: 500 MG, 3X/DAY
     Route: 048
     Dates: start: 20220704, end: 20220911
  9. OXYCODONE HYDROCHLORIDE [Concomitant]
     Active Substance: OXYCODONE HYDROCHLORIDE
     Indication: Back pain
     Dosage: 1 DF, 3X/DAY
     Route: 048
     Dates: start: 20220401, end: 20220905
  10. MELATONIN [Concomitant]
     Active Substance: MELATONIN
     Indication: Prophylaxis
     Dosage: 1 DF, 1X/DAY
     Route: 048
     Dates: start: 20220826, end: 20220826
  11. SEROQUEL [Concomitant]
     Active Substance: QUETIAPINE FUMARATE
     Indication: Prophylaxis
     Dosage: 1 DF, 1X/DAY (QUETIAPINE FUMARATE28.78G)
     Route: 048
     Dates: start: 20220826, end: 20220826
  12. CALCIUM POLYCARBOPHIL [Concomitant]
     Active Substance: CALCIUM POLYCARBOPHIL
     Indication: Constipation
     Dosage: 1 DF, 1X/DAY (125 MG AS CA)
     Route: 048
     Dates: start: 20220826, end: 20220917
  13. TRAMADOL HYDROCHLORIDE [Concomitant]
     Active Substance: TRAMADOL HYDROCHLORIDE
     Indication: Prophylaxis
     Dosage: 1 AMPLE, 1X/DAY
     Route: 042
     Dates: start: 20220827, end: 20220921
  14. RAMOSETRON HYDROCHLORIDE [Concomitant]
     Active Substance: RAMOSETRON HYDROCHLORIDE
     Indication: Prophylaxis
     Dosage: 1 AMPLE, 1X/DAY (0.3 MG/2 ML)
     Route: 042
     Dates: start: 20220827, end: 20220827
  15. MACPERAN [METOCLOPRAMIDE] [Concomitant]
     Indication: Prophylaxis
     Dosage: 1 AMPLE, 2X/DAY (10G/ 2ML (8.46MG AS METOCLOPRAMIDE)
     Route: 042
     Dates: start: 20220828, end: 20220828
  16. ENTELON [Concomitant]
     Indication: Prophylaxis
     Dosage: 1 DF, 2X/DAY
     Route: 048
     Dates: start: 20220829, end: 20220917
  17. LASIX [Concomitant]
     Active Substance: FUROSEMIDE
     Indication: Urinary tract infection
     Dosage: 0.5 AMPLE, 1X/DAY (20MG/2ML)
     Route: 042
     Dates: start: 20220827, end: 20220919
  18. TARASYN [Concomitant]
     Indication: Prophylaxis
     Dosage: 1 AMPLE, 1X/DAY
     Route: 042
     Dates: start: 20220831, end: 20220831
  19. ACETAPHEN [Concomitant]
     Indication: Prophylaxis
     Dosage: 0.5 DF, AS NEEDED (BAG)
     Route: 042
     Dates: start: 20220831, end: 20220917
  20. CEFAZOLIN SODIUM [Concomitant]
     Active Substance: CEFAZOLIN SODIUM
     Indication: Urinary tract infection
     Dosage: 2 DF, 3X/DAY (VIAL)
     Route: 042
     Dates: start: 20220902, end: 20220903
  21. MACPERAN [METOCLOPRAMIDE] [Concomitant]
     Indication: Prophylaxis
     Dosage: 1 DF, 3X/DAY
     Route: 048
     Dates: start: 20220902, end: 20220912
  22. NEURONTIN [Concomitant]
     Active Substance: GABAPENTIN
     Indication: Prophylaxis
     Dosage: 1 DF, 3X/DAY
     Route: 048
     Dates: start: 20220903, end: 20220911
  23. URSODIOL [Concomitant]
     Active Substance: URSODIOL
     Indication: Aspartate aminotransferase increased
     Dosage: 1 DF, 3X/DAY
     Route: 048
     Dates: start: 20220905, end: 20220917
  24. CALCIUM GLUCONATE [Concomitant]
     Active Substance: CALCIUM GLUCONATE
     Indication: Prophylaxis
     Dosage: 1 AMPLE, 1X/DAY (CALCIUM GLUCONATE 2G/ 20ML)
     Route: 042
     Dates: start: 20220911, end: 20220914
  25. CALCIUM POLYSTYRENE SULFONATE [Concomitant]
     Active Substance: CALCIUM POLYSTYRENE SULFONATE
     Indication: Hyperkalaemia
     Dosage: UNK, 1X/DAY PKS (POLYSTYRENE SULFONATE CALCIUM 5G/ P)
     Route: 048
     Dates: start: 20220911, end: 20220914
  26. DAIHAN SODIUM CHLORIDE [Concomitant]
     Indication: Hyponatraemia
     Dosage: 1 DF, 1X/DAY (BTL) (SODIUM CHLORIDE 30G/1000ML)
     Route: 042
     Dates: start: 20220911, end: 20220920
  27. XYZAL [Concomitant]
     Active Substance: LEVOCETIRIZINE DIHYDROCHLORIDE
     Indication: Prophylaxis
     Dosage: 1 DF, 1X/DAY
     Route: 048
     Dates: start: 20220912, end: 20220913
  28. TWOLION [Concomitant]
     Indication: Prophylaxis
     Dosage: 1 DF, 2X/DAY
     Route: 048
     Dates: start: 20220913, end: 20220917
  29. CINEZOLID [Concomitant]
     Indication: Urinary tract infection
     Dosage: 1 DF, 2X/DAY (BAG)
     Route: 048
     Dates: start: 20220915, end: 20220921
  30. LACIDOFIL CAP [Concomitant]
     Indication: Constipation
     Dosage: 1 DF, 2X/DAY
     Route: 048
     Dates: start: 20220428, end: 20220917
  31. TEPRA TAB [Concomitant]
     Indication: Tachycardia
     Dosage: 0.5 DF, 2X/DAY
     Route: 048
     Dates: start: 20220826, end: 20220917
  32. TARGIN PR [Concomitant]
     Indication: Back pain
     Dosage: 1 DF, 2X/DAY
     Route: 048
     Dates: start: 20220725, end: 20220917
  33. BORYUNGBIO CEFTRIAXONE [Concomitant]
     Indication: Urinary tract infection
     Dosage: 1 DF (KIT) 1X/DAY
     Route: 042
     Dates: start: 20220831, end: 20220831
  34. DELI PETHIDINE [Concomitant]
     Indication: Prophylaxis
     Dosage: 1 AMPLE, 1X/DAY (25MG/0.5 ML)
     Route: 030
     Dates: start: 20220831, end: 20220921
  35. TAZOPERAN [Concomitant]
     Indication: Urinary tract infection
     Dosage: 1 DF, 3X/DAY (VIAL)
     Route: 042
     Dates: start: 20220901, end: 20220902
  36. TRESTAN CAP [Concomitant]
     Indication: Prophylaxis
     Dosage: 1 DF, 2X/DAY
     Route: 048
     Dates: start: 20220904, end: 20220917
  37. DULACKHAN EASY SYR [Concomitant]
     Indication: Constipation
     Dosage: 1 DF, 1X/DAY PK (LACTULOSE CONCENTRATE 134G/100ML (67G AS LACTULOSE)
     Route: 048
     Dates: start: 20220905, end: 20220917
  38. ABSTRAL SUBLINGUAL [Concomitant]
     Indication: Prophylaxis
     Dosage: 1 DF, 4X/DAY (FENTANYL CITRATE 341.2 UG (200UG A S FENTANYL)
     Route: 048
     Dates: start: 20220910, end: 20220914
  39. TEICONIN [Concomitant]
     Indication: Urinary tract infection
     Dosage: 6 MG/KG, 2X/DAY
     Route: 042
     Dates: start: 20220912, end: 20220912
  40. GODEX CAP [Concomitant]
     Indication: Aspartate aminotransferase increased
     Dosage: 2 DF, 2X/DAY (73.8MG AS OROTIC ACID, 76.2MG AS CARNITINE,BIPHENYL-DIMETHYL-DICARBOXYLATE 25G)
     Route: 048
     Dates: start: 20220912, end: 20220917
  41. MAGO CAP [Concomitant]
     Indication: Constipation
     Dosage: 1 DF, 3X/DAY
     Route: 048
     Dates: start: 20220704, end: 20220911

REACTIONS (6)
  - Acute kidney injury [Fatal]
  - Urinary tract infection [Fatal]
  - Hyperkalaemia [Recovered/Resolved]
  - Hyponatraemia [Not Recovered/Not Resolved]
  - Aspartate aminotransferase increased [Recovered/Resolved]
  - Aspartate aminotransferase increased [Recovered/Resolved]

NARRATIVE: CASE EVENT DATE: 20220911
